FAERS Safety Report 6875264-5 (Version None)
Quarter: 2010Q2

REPORT INFORMATION
  Report Type: 
  Country: None (occurrence: None)
  Receive Date: 20100610
  Receipt Date: 20100313
  Transmission Date: 20101027
  Serious: No
  Sender: FDA-Public Use
  Company Number: 2010SP016180

PATIENT
  Age: 38 Year
  Sex: Male

DRUGS (2)
  1. SAPHRIS [Suspect]
     Indication: BIPOLAR DISORDER
     Dosage: 10 MG;QD
  2. SAPHRIS [Suspect]
     Indication: MANIA
     Dosage: 10 MG;QD

REACTIONS (1)
  - MUSCLE TIGHTNESS [None]
